FAERS Safety Report 16667228 (Version 1)
Quarter: 2019Q3

REPORT INFORMATION
  Report Type: Spontaneous
  Country: IN (occurrence: IN)
  Receive Date: 20190805
  Receipt Date: 20190805
  Transmission Date: 20191004
  Serious: No
  Sender: FDA-Public Use
  Company Number: IN-LUPIN LIMITED-2018-04792

PATIENT
  Age: 57 Year
  Sex: Male

DRUGS (6)
  1. CARDIVAS                           /00972402/ [Concomitant]
     Indication: PRODUCT USED FOR UNKNOWN INDICATION
     Dosage: 1 DF, QD
     Route: 065
     Dates: start: 20180508
  2. RAMISTAR TABLET 5 MG [Suspect]
     Active Substance: RAMIPRIL
     Indication: CARDIAC PACEMAKER INSERTION
     Dosage: 1 DF, QD
     Route: 065
     Dates: start: 2015
  3. RAMISTAR TABLET 5 MG [Suspect]
     Active Substance: RAMIPRIL
     Dosage: 1 DF, QD (AFTER FOOD)
     Route: 048
     Dates: start: 20180508, end: 20180623
  4. ALDACTONE [Concomitant]
     Active Substance: SPIRONOLACTONE
     Indication: PRODUCT USED FOR UNKNOWN INDICATION
     Dosage: 1 DF, BID
     Route: 065
     Dates: start: 20180508
  5. ECOSPRIN AV [Concomitant]
     Indication: PRODUCT USED FOR UNKNOWN INDICATION
     Dosage: 1 DF, QD
     Route: 065
     Dates: start: 20180508
  6. METFORMIN HYDROCHLORIDE. [Concomitant]
     Active Substance: METFORMIN HYDROCHLORIDE
     Indication: DIABETES MELLITUS
     Dosage: 1 DF, TID
     Route: 065
     Dates: start: 2014

REACTIONS (1)
  - Cough [Not Recovered/Not Resolved]
